FAERS Safety Report 8568511-5 (Version None)
Quarter: 2012Q3

REPORT INFORMATION
  Report Type: 
  Country: None (occurrence: None)
  Receive Date: 20120803
  Receipt Date: 20120727
  Transmission Date: 20120928
  Serious: Yes (Other)
  Sender: FDA-Public Use
  Company Number: JP-009507513-1207JPN012667

PATIENT

DRUGS (1)
  1. TEMODAL [Suspect]
     Indication: MALIGNANT GLIOMA
     Dosage: DOSAGE UNKNOWN DURING A DAY
     Route: 048
     Dates: start: 20120601, end: 20120701

REACTIONS (2)
  - RENAL DISORDER [None]
  - LIVER DISORDER [None]
